FAERS Safety Report 17376520 (Version 1)
Quarter: 2020Q1

REPORT INFORMATION
  Report Type: Spontaneous
  Country: DE (occurrence: DE)
  Receive Date: 20200206
  Receipt Date: 20200206
  Transmission Date: 20200409
  Serious: Yes (Death, Hospitalization, Other)
  Sender: FDA-Public Use
  Company Number: NVSC2020DE027738

PATIENT
  Age: 56 Year
  Sex: Female
  Weight: 87 kg

DRUGS (16)
  1. NEOTAXAN [Suspect]
     Active Substance: PACLITAXEL
     Indication: NEOADJUVANT THERAPY
  2. SILAPO [Concomitant]
     Indication: PRODUCT USED FOR UNKNOWN INDICATION
     Route: 065
  3. DEXAMETHASONE. [Concomitant]
     Active Substance: DEXAMETHASONE
     Indication: PREMEDICATION
     Route: 065
  4. IBUPROFEN. [Concomitant]
     Active Substance: IBUPROFEN
     Indication: PRODUCT USED FOR UNKNOWN INDICATION
     Route: 065
  5. FENISTIL [Concomitant]
     Active Substance: DIMETHINDENE
     Indication: PREMEDICATION
     Route: 065
  6. XELEVIA [Concomitant]
     Active Substance: SITAGLIPTIN PHOSPHATE
     Indication: PRODUCT USED FOR UNKNOWN INDICATION
     Route: 065
  7. RANITIDINE. [Concomitant]
     Active Substance: RANITIDINE
     Indication: PREMEDICATION
     Route: 065
  8. CARBOPLATIN. [Suspect]
     Active Substance: CARBOPLATIN
     Indication: BREAST CANCER
     Dosage: 821 MG (821 MG CARBOPLATIN 500 ML GLUCOSE 5% (AUC5) )
     Route: 065
     Dates: start: 20190426, end: 20190730
  9. SIOFOR [Concomitant]
     Active Substance: METFORMIN HYDROCHLORIDE
     Indication: PRODUCT USED FOR UNKNOWN INDICATION
     Route: 065
  10. JARDIANCE [Concomitant]
     Active Substance: EMPAGLIFLOZIN
     Indication: PRODUCT USED FOR UNKNOWN INDICATION
     Route: 065
  11. NEOTAXAN [Suspect]
     Active Substance: PACLITAXEL
     Indication: BREAST CANCER
     Dosage: 344 MG (500 ML NACL 0.9% SEIT 26.04.19 DANACH 3-WOCHEN-ZYKLUS, 5 ZYKLUS AM 30.07.19)
     Route: 065
     Dates: start: 20190426, end: 20190730
  12. CARBOPLATIN. [Suspect]
     Active Substance: CARBOPLATIN
     Indication: NEOADJUVANT THERAPY
  13. PANTOPRAZOL [Concomitant]
     Active Substance: PANTOPRAZOLE SODIUM
     Indication: PRODUCT USED FOR UNKNOWN INDICATION
     Route: 065
  14. IVEMEND [Concomitant]
     Active Substance: FOSAPREPITANT DIMEGLUMINE
     Indication: PREMEDICATION
     Route: 065
  15. ONDANSETRON [Concomitant]
     Active Substance: ONDANSETRON
     Indication: PREMEDICATION
     Route: 065
  16. FERINJECT [Concomitant]
     Active Substance: FERRIC CARBOXYMALTOSE
     Indication: PRODUCT USED FOR UNKNOWN INDICATION
     Route: 065

REACTIONS (13)
  - Abdominal pain [Unknown]
  - Anaemia [Unknown]
  - Heparin-induced thrombocytopenia [Unknown]
  - Diarrhoea [Unknown]
  - Condition aggravated [Unknown]
  - Malaise [Unknown]
  - Cerebral haemorrhage [Fatal]
  - Tachycardia [Unknown]
  - Anuria [Unknown]
  - Respiratory failure [Unknown]
  - Pulmonary congestion [Unknown]
  - Pyrexia [Unknown]
  - Enteritis [Unknown]

NARRATIVE: CASE EVENT DATE: 201908
